FAERS Safety Report 13635220 (Version 1)
Quarter: 2017Q2

REPORT INFORMATION
  Report Type: Spontaneous
  Country: US (occurrence: US)
  Receive Date: 20170608
  Receipt Date: 20170608
  Transmission Date: 20170830
  Serious: Yes (Disabling)
  Sender: FDA-Public Use
  Company Number: None

PATIENT
  Age: 23 Year
  Sex: Female
  Weight: 48.6 kg

DRUGS (3)
  1. DULOXETINE. [Suspect]
     Active Substance: DULOXETINE
     Indication: DEPRESSION
     Dosage: ?          QUANTITY:1 CAPSULE(S);?
     Route: 048
     Dates: start: 20161001, end: 20170415
  2. MILK THISTLE [Concomitant]
     Active Substance: MILK THISTLE
  3. DANDELION ROOT SUPPLEMENT [Concomitant]

REACTIONS (9)
  - Blood pressure increased [None]
  - Palpitations [None]
  - Mitral valve incompetence [None]
  - Heart rate increased [None]
  - Mood swings [None]
  - Anxiety [None]
  - Paraesthesia [None]
  - Liver injury [None]
  - Suicidal ideation [None]

NARRATIVE: CASE EVENT DATE: 20170608
